FAERS Safety Report 23638421 (Version 1)
Quarter: 2024Q1

REPORT INFORMATION
  Report Type: Spontaneous
  Country: CH (occurrence: CH)
  Receive Date: 20240315
  Receipt Date: 20240315
  Transmission Date: 20240410
  Serious: Yes (Hospitalization)
  Sender: FDA-Public Use
  Company Number: None

PATIENT
  Age: 68 Year
  Sex: Male
  Weight: 78 kg

DRUGS (4)
  1. VIMPAT [Suspect]
     Active Substance: LACOSAMIDE
     Indication: Epilepsy
     Dosage: START VIMPAT 08/2023, UPTITRATION SCHEME NOT KNOWN
     Route: 048
     Dates: start: 202308, end: 202312
  2. VIMPAT [Suspect]
     Active Substance: LACOSAMIDE
     Dosage: VIMPAT UPTITRATION ON 5/12/23: PRESCRIBED DAILY DOSE 350 MG (200 MG-0-150 MG); INCORRECT INTAKE (DOU
     Route: 048
     Dates: start: 20231205, end: 202312
  3. VIMPAT [Suspect]
     Active Substance: LACOSAMIDE
     Dosage: VIMPAT: AFTER PAUSE, AGAIN GIVEN FROM 28/12/23 AT DOSE OF 150 MG-0-150 MG.
     Route: 048
     Dates: start: 20231228
  4. KEPPRA [Concomitant]
     Active Substance: LEVETIRACETAM
     Indication: Epilepsy
     Dosage: 1500 MILLIGRAM, 2X/DAY (BID)
     Route: 048

REACTIONS (7)
  - Nystagmus [Recovered/Resolved]
  - Gait disturbance [Recovered/Resolved]
  - Psychomotor retardation [Recovered/Resolved]
  - Nausea [Recovered/Resolved]
  - Toxicity to various agents [Recovered/Resolved]
  - Anticonvulsant drug level increased [Recovered/Resolved]
  - Accidental overdose [Unknown]

NARRATIVE: CASE EVENT DATE: 20231201
